FAERS Safety Report 18581713 (Version 1)
Quarter: 2020Q4

REPORT INFORMATION
  Report Type: Spontaneous
  Country: GB (occurrence: GB)
  Receive Date: 20201204
  Receipt Date: 20201204
  Transmission Date: 20210114
  Serious: Yes (Disabling)
  Sender: FDA-Public Use
  Company Number: GB-TEVA-2020-GB-1853409

PATIENT
  Age: 83 Year
  Sex: Female
  Weight: 97 kg

DRUGS (13)
  1. ALENDRONIC ACID [Suspect]
     Active Substance: ALENDRONIC ACID
     Dosage: WITH PLENTY OF WATER, UNIT DOSE: 70 MG
     Route: 048
     Dates: start: 20200812
  2. SALBUTAMOL [Concomitant]
     Active Substance: ALBUTEROL
     Dosage: 2 PUFFS AS REQUIRED UP TO QDS, UNIT DOSE: 2 DOSAGE FORMS
     Dates: start: 20161207
  3. BRIMONIDINE TARTRATE. [Concomitant]
     Active Substance: BRIMONIDINE TARTRATE
     Dosage: TO THE LEFT EYE, 2 GTT
     Dates: start: 20161207
  4. BIMATOPROST. [Concomitant]
     Active Substance: BIMATOPROST
     Dosage: 1 GTT
     Dates: start: 20161207
  5. ADCAL [Concomitant]
     Indication: OSTEOPOROSIS PROPHYLAXIS
     Dosage: TO PROTECT BONES WH...UNIT DOSE: 2 DOSAGE FORMS
     Dates: start: 20200710
  6. RAMIPRIL. [Concomitant]
     Active Substance: RAMIPRIL
     Dosage: 1 DOSAGE FORMS
     Dates: start: 20190128
  7. DORZOLAMIDE HYDROCHLORIDE. [Concomitant]
     Active Substance: DORZOLAMIDE HYDROCHLORIDE
     Dosage: TO THE LEFT EYE, UNIT DOSE: 2 GTT
     Dates: start: 20161207
  8. VISCOTEARS [Concomitant]
     Active Substance: CARBOMER
     Indication: DRY EYE
     Dates: start: 20161207
  9. FLUTICASONE. [Concomitant]
     Active Substance: FLUTICASONE
     Dosage: PUFFS UNIT DOSE: 4 DOSAGE FORMS
     Dates: start: 20161207
  10. PREDNISOLONE. [Concomitant]
     Active Substance: PREDNISOLONE
     Dosage: 9 MILLIGRAM DAILY; FOUR TO BE TAKEN ONCE DAILY FOR 6 WEEKS (TOTAL DOSE?9MG ONCE DAILY)
     Dates: start: 20201009
  11. PARACETAMOL [Concomitant]
     Active Substance: ACETAMINOPHEN
     Dosage: TAKE ONE OR TWO TABLETS UP TO FOUR TIMES A DAY
     Dates: start: 20200701
  12. FOLIC ACID. [Concomitant]
     Active Substance: FOLIC ACID
     Dosage: 1 DOSAGE FORMS
     Dates: start: 20200317
  13. LACTULOSE. [Concomitant]
     Active Substance: LACTULOSE
     Dosage: TAKE TWO TO THREE 5ML SPOONFULS TWICE A DAY
     Dates: start: 20200701

REACTIONS (2)
  - Depressed mood [Recovered/Resolved]
  - Suicidal ideation [Unknown]

NARRATIVE: CASE EVENT DATE: 20201103
